FAERS Safety Report 5188966-6 (Version None)
Quarter: 2006Q4

REPORT INFORMATION
  Report Type: 
  Country: None (occurrence: None)
  Receive Date: 20061221
  Receipt Date: 20050609
  Transmission Date: 20070319
  Serious: No
  Sender: FDA-Public Use
  Company Number: US-AMGEN-US138052

PATIENT
  Sex: Male
  Weight: 72.6 kg

DRUGS (1)
  1. ENBREL [Suspect]
     Indication: PSORIASIS
     Route: 058
     Dates: start: 20030107, end: 20050502

REACTIONS (3)
  - ABNORMAL SENSATION IN EYE [None]
  - FOREIGN BODY SENSATION IN EYES [None]
  - VISUAL DISTURBANCE [None]
